FAERS Safety Report 9463831 (Version 1)
Quarter: 2013Q3

REPORT INFORMATION
  Report Type: Spontaneous
  Country: SE (occurrence: SE)
  Receive Date: 20130819
  Receipt Date: 20130819
  Transmission Date: 20140515
  Serious: Yes (Life-Threatening)
  Sender: FDA-Public Use
  Company Number: SE-JNJFOC-20130805718

PATIENT
  Age: 26 Year
  Sex: Female

DRUGS (2)
  1. RISPERDAL CONSTA [Suspect]
     Indication: PRODUCT USED FOR UNKNOWN INDICATION
     Route: 030
     Dates: start: 20101015, end: 20130214
  2. CIPRALEX [Concomitant]
     Route: 065

REACTIONS (7)
  - Depressed mood [Unknown]
  - Tunnel vision [Unknown]
  - Insomnia [Unknown]
  - Discomfort [Unknown]
  - Emotional poverty [Unknown]
  - Feeling cold [Unknown]
  - Fatigue [Unknown]
